FAERS Safety Report 6258459-3 (Version None)
Quarter: 2009Q3

REPORT INFORMATION
  Report Type: 
  Country: None (occurrence: None)
  Receive Date: 20090707
  Receipt Date: 20090706
  Transmission Date: 20100115
  Serious: Yes (Hospitalization)
  Sender: FDA-Public Use
  Company Number: FR-PFIZER INC-2009196363

PATIENT
  Age: 35 Year

DRUGS (9)
  1. VFEND [Suspect]
     Dosage: 200 MG, 2X/DAY
     Dates: start: 20090314, end: 20090322
  2. KIDROLASE [Suspect]
     Indication: ACUTE LYMPHOCYTIC LEUKAEMIA
     Dosage: 10800 IU, 1X/DAY
     Route: 048
     Dates: start: 20090313, end: 20090319
  3. EMEND [Suspect]
     Dosage: 80 MG, 1X/DAY
     Route: 048
     Dates: start: 20090310, end: 20090320
  4. ENDOXAN [Concomitant]
     Indication: ACUTE LYMPHOCYTIC LEUKAEMIA
     Dosage: 300 MG, 2X/DAY
     Dates: start: 20090311, end: 20090312
  5. VINCRISTINE [Concomitant]
     Indication: ACUTE LYMPHOCYTIC LEUKAEMIA
     Dosage: 2 MG, 1X/DAY
     Dates: start: 20090317, end: 20090317
  6. BACTRIM [Concomitant]
  7. MUCOMYST [Concomitant]
     Dosage: UNK
  8. CONTRAMAL [Concomitant]
  9. ACLOTINE [Concomitant]
     Dosage: UNK
     Dates: start: 20090312, end: 20090319

REACTIONS (3)
  - CHOLESTASIS [None]
  - CYTOLYTIC HEPATITIS [None]
  - HEPATIC STEATOSIS [None]
